FAERS Safety Report 8397480-6 (Version None)
Quarter: 2012Q2

REPORT INFORMATION
  Report Type: 
  Country: None (occurrence: None)
  Receive Date: 20120529
  Receipt Date: 20120529
  Transmission Date: 20120825
  Serious: Yes (Other)
  Sender: FDA-Public Use
  Company Number: None

PATIENT
  Sex: Male
  Weight: 64 kg

DRUGS (1)
  1. PSEUDOEPHEDRINE HCL [Suspect]
     Indication: RESPIRATORY TRACT CONGESTION
     Dosage: 30 MG HS PO
     Route: 048
     Dates: start: 20120521, end: 20120522

REACTIONS (6)
  - SOMNOLENCE [None]
  - IMPAIRED REASONING [None]
  - NEGATIVISM [None]
  - DECREASED APPETITE [None]
  - AGGRESSION [None]
  - THINKING ABNORMAL [None]
